FAERS Safety Report 7624875-8 (Version None)
Quarter: 2011Q3

REPORT INFORMATION
  Report Type: 
  Country: None (occurrence: None)
  Receive Date: 20110720
  Receipt Date: 20110714
  Transmission Date: 20111222
  Serious: Yes (Death)
  Sender: FDA-Public Use
  Company Number: ZW-GILEAD-2011-0041102

PATIENT
  Sex: Female
  Weight: 45 kg

DRUGS (5)
  1. EMTRICITABINE AND TENOFOVIR DISOPROXIL FUMARATE [Suspect]
     Indication: HIV INFECTION
     Route: 048
     Dates: start: 20110615, end: 20110618
  2. LAMIVUDINE [Concomitant]
     Indication: HIV INFECTION
     Dates: start: 20051101
  3. NEVIRAPINE [Concomitant]
     Indication: HIV INFECTION
     Dates: start: 20051101
  4. RITONAVIR [Suspect]
     Indication: HIV INFECTION
     Route: 048
     Dates: start: 20110615, end: 20110618
  5. STAVUDINE [Concomitant]
     Indication: HIV INFECTION
     Dates: start: 20051101

REACTIONS (1)
  - RESPIRATORY DISTRESS [None]
